FAERS Safety Report 20853830 (Version 4)
Quarter: 2022Q4

REPORT INFORMATION
  Report Type: Spontaneous
  Country: JP (occurrence: JP)
  Receive Date: 20220520
  Receipt Date: 20221006
  Transmission Date: 20230113
  Serious: Yes (Hospitalization, Other)
  Sender: FDA-Public Use
  Company Number: JP-GLAXOSMITHKLINE-JP2022JPN066880

PATIENT

DRUGS (7)
  1. BENLYSTA [Suspect]
     Active Substance: BELIMUMAB
     Indication: Systemic lupus erythematosus
     Dosage: 200 MG, WE
     Route: 058
     Dates: start: 20211116, end: 20220111
  2. BENLYSTA [Suspect]
     Active Substance: BELIMUMAB
     Dosage: 200 MG, WE
     Route: 058
     Dates: start: 20220308
  3. CELLCEPT [Suspect]
     Active Substance: MYCOPHENOLATE MOFETIL
     Indication: Lupus nephritis
     Dosage: 1.5 G, 1D
     Route: 048
     Dates: start: 20211108
  4. CELLCEPT [Suspect]
     Active Substance: MYCOPHENOLATE MOFETIL
     Indication: Systemic lupus erythematosus
  5. PREDONINE [Concomitant]
     Active Substance: PREDNISOLONE
     Indication: Systemic lupus erythematosus
     Dosage: 22.5 MG
     Route: 048
  6. IRSOGLADINE MALEATE TABLETS [Concomitant]
     Indication: Prophylaxis
     Dosage: 4 MG
     Route: 048
  7. ELDECALCITOL CAPSULES [Concomitant]
     Indication: Prophylaxis
     Dosage: 0.75 ?G
     Route: 048

REACTIONS (7)
  - Herpes zoster [Recovered/Resolved]
  - Herpes zoster meningomyelitis [Recovered/Resolved]
  - Dysuria [Recovered/Resolved]
  - Dyschezia [Recovered/Resolved]
  - Immunosuppression [Unknown]
  - Pyrexia [Recovered/Resolved]
  - Headache [Recovered/Resolved]

NARRATIVE: CASE EVENT DATE: 20211223
